FAERS Safety Report 14491281 (Version 4)
Quarter: 2018Q2

REPORT INFORMATION
  Report Type: Spontaneous
  Country: CZ (occurrence: CZ)
  Receive Date: 20180206
  Receipt Date: 20180622
  Transmission Date: 20180711
  Serious: Yes (Hospitalization, Other)
  Sender: FDA-Public Use
  Company Number: PHHY2017CZ199932

PATIENT

DRUGS (5)
  1. OMEPRAZOLE. [Concomitant]
     Active Substance: OMEPRAZOLE
     Dosage: 40 MG, QD
     Route: 065
  2. AMOXICILLIN. [Suspect]
     Active Substance: AMOXICILLIN
     Route: 065
  3. OMEPRAZOLE. [Concomitant]
     Active Substance: OMEPRAZOLE
     Indication: DYSPEPSIA
     Dosage: 40 MG, UNK
     Route: 065
  4. AMOXICILLIN. [Suspect]
     Active Substance: AMOXICILLIN
     Indication: LYME DISEASE
     Dosage: 1000 MG, QD (FOR DURATION OF 3 WEEKS)
     Route: 065
     Dates: start: 20100901
  5. AMOXICILLIN. [Suspect]
     Active Substance: AMOXICILLIN
     Indication: ERYTHEMA MIGRANS
     Dosage: 1000 MG, UNK
     Route: 065
     Dates: start: 201009

REACTIONS (18)
  - Hepatic encephalopathy [Recovered/Resolved]
  - Hepatic cirrhosis [Recovered/Resolved]
  - Blood alkaline phosphatase increased [Recovered/Resolved]
  - Hepatic fibrosis [Recovered/Resolved]
  - Bleeding varicose vein [Recovered/Resolved]
  - Gamma-glutamyltransferase increased [Recovered/Resolved]
  - Haematemesis [Recovered/Resolved]
  - Antinuclear antibody positive [Recovered/Resolved]
  - Oesophageal varices haemorrhage [Recovered/Resolved]
  - Alanine aminotransferase increased [Recovered/Resolved]
  - Anaemia [Recovered/Resolved]
  - Alpha 1 foetoprotein increased [Recovered/Resolved]
  - Liver disorder [Recovered/Resolved]
  - Cholestasis [Recovered/Resolved]
  - Immunoglobulins increased [Recovered/Resolved]
  - Product use in unapproved indication [Unknown]
  - Acute on chronic liver failure [Recovered/Resolved]
  - Aspartate aminotransferase increased [Recovered/Resolved]
